FAERS Safety Report 7896808-0 (Version None)
Quarter: 2011Q4

REPORT INFORMATION
  Report Type: 
  Country: None (occurrence: None)
  Receive Date: 20111107
  Receipt Date: 20111103
  Transmission Date: 20120403
  Serious: No
  Sender: FDA-Public Use
  Company Number: US-BIOGENIDEC-2011BI041852

PATIENT
  Sex: Female

DRUGS (1)
  1. TYSABRI [Suspect]
     Indication: ACCIDENTAL EXPOSURE
     Dates: start: 20111103, end: 20111103

REACTIONS (1)
  - ACCIDENTAL EXPOSURE [None]
